FAERS Safety Report 5402070-0 (Version None)
Quarter: 2007Q3

REPORT INFORMATION
  Report Type: 
  Country: None (occurrence: None)
  Receive Date: 20070727
  Receipt Date: 20050727
  Transmission Date: 20080115
  Serious: Yes (Other)
  Sender: FDA-Public Use
  Company Number: THYM-10493

PATIENT
  Age: 47 Year
  Sex: Female
  Weight: 59.9 kg

DRUGS (18)
  1. THYMOGLOBULIN [Suspect]
     Indication: LIVER TRANSPLANT
     Dosage: 90 MG QD IV
     Route: 042
     Dates: start: 20050412, end: 20050413
  2. THYMOGLOBULIN [Suspect]
     Indication: LIVER TRANSPLANT
     Dosage: 45 MG QD IV
     Route: 042
     Dates: start: 20050414, end: 20050414
  3. THYMOGLOBULIN [Suspect]
     Indication: LIVER TRANSPLANT
     Dosage: 45 MG QD IV
     Route: 042
     Dates: start: 20050416, end: 20050416
  4. CELLCEPT [Concomitant]
  5. PEPCID [Concomitant]
  6. BACTRIM [Concomitant]
  7. NYSTATIN [Concomitant]
  8. VANCOMYCIN [Concomitant]
  9. PROTONIX [Concomitant]
  10. CANCIDAS [Concomitant]
  11. GANCICLOVIR [Concomitant]
  12. ZOSYN [Concomitant]
  13. LEVOPHED [Concomitant]
  14. NOVOLIN 50/50 [Concomitant]
  15. XOPENEX [Concomitant]
  16. MORPHINE [Concomitant]
  17. POTASSIUM CHLORIDE [Concomitant]
  18. CALCIUM CHLORIDE [Concomitant]

REACTIONS (1)
  - LIVER TRANSPLANT REJECTION [None]
